FAERS Safety Report 8379183-7 (Version None)
Quarter: 2012Q1

REPORT INFORMATION
  Report Type: 
  Country: None (occurrence: None)
  Receive Date: 20120323
  Receipt Date: 20110411
  Transmission Date: 20120608
  Serious: Yes (Other)
  Sender: FDA-Public Use
  Company Number: 163-21880-11031992

PATIENT
  Age: 74 Year
  Sex: Female

DRUGS (2)
  1. REVLIMID [Suspect]
     Indication: MULTIPLE MYELOMA
     Dosage: 5 MG, DAILY FOR 21 DAYS OUT OF 28 DAYS, PO 5 MG, DAILY FOR 21 DAYS OUT OF 28 DAYS, PO
     Route: 048
     Dates: start: 20100915
  2. REVLIMID [Suspect]
     Indication: MULTIPLE MYELOMA
     Dosage: 5 MG, DAILY FOR 21 DAYS OUT OF 28 DAYS, PO 5 MG, DAILY FOR 21 DAYS OUT OF 28 DAYS, PO
     Route: 048
     Dates: start: 20090226, end: 20100106

REACTIONS (1)
  - URINARY TRACT INFECTION [None]
